FAERS Safety Report 10077119 (Version 3)
Quarter: 2014Q3

REPORT INFORMATION
  Report Type: Spontaneous
  Country: FR (occurrence: FR)
  Receive Date: 20140414
  Receipt Date: 20140708
  Transmission Date: 20150326
  Serious: Yes (Hospitalization)
  Sender: FDA-Public Use
  Company Number: PHHY2014FR044862

PATIENT
  Age: 82 Year
  Sex: Male
  Weight: 75 kg

DRUGS (9)
  1. VASTEN [Concomitant]
     Active Substance: PRAVASTATIN SODIUM
  2. KARDEGIC [Concomitant]
     Active Substance: ASPIRIN LYSINE
  3. AMLOR [Concomitant]
     Active Substance: AMLODIPINE BESYLATE
  4. LASILIX [Concomitant]
     Active Substance: FUROSEMIDE
  5. NATISPRAY [Concomitant]
     Active Substance: NITROGLYCERIN
  6. QUINAPRIL [Concomitant]
     Active Substance: QUINAPRIL\QUINAPRIL HYDROCHLORIDE
  7. TASIGNA [Suspect]
     Active Substance: NILOTINIB
     Indication: CHRONIC MYELOID LEUKAEMIA
     Dosage: 600 MG, QD
     Route: 048
     Dates: start: 2008, end: 20140401
  8. DIAFUSOR [Concomitant]
     Active Substance: NITROGLYCERIN
  9. CELECTOL [Concomitant]
     Active Substance: CELIPROLOL HYDROCHLORIDE

REACTIONS (2)
  - Coronary artery disease [Recovered/Resolved]
  - Angina pectoris [Recovered/Resolved]

NARRATIVE: CASE EVENT DATE: 20140301
